FAERS Safety Report 4780093-2 (Version None)
Quarter: 2005Q3

REPORT INFORMATION
  Report Type: 
  Country: None (occurrence: None)
  Receive Date: 20050914
  Receipt Date: 20050427
  Transmission Date: 20060218
  Serious: Yes (Hospitalization)
  Sender: FDA-Public Use
  Company Number: 163-20785-05040562

PATIENT
  Age: 50 Year
  Sex: Female
  Weight: 72.6 kg

DRUGS (37)
  1. THALOMID [Suspect]
     Indication: MULTIPLE MYELOMA
     Dosage: SEE IMAGE
     Route: 048
     Dates: start: 20040123, end: 20040131
  2. THALOMID [Suspect]
     Indication: MULTIPLE MYELOMA
     Dosage: SEE IMAGE
     Route: 048
     Dates: start: 20040203, end: 20040404
  3. THALOMID [Suspect]
     Indication: MULTIPLE MYELOMA
     Dosage: SEE IMAGE
     Route: 048
     Dates: start: 20040723, end: 20040907
  4. THALOMID [Suspect]
     Indication: MULTIPLE MYELOMA
     Dosage: SEE IMAGE
     Route: 048
     Dates: start: 20041014, end: 20041014
  5. THALOMID [Suspect]
     Indication: MULTIPLE MYELOMA
     Dosage: SEE IMAGE
     Route: 048
     Dates: start: 20041121, end: 20050105
  6. MELPHALAN (MELPHALAN) [Suspect]
     Indication: MULTIPLE MYELOMA
     Dosage: 350 MG, DAILY; 350 MG, DAILY
     Dates: start: 20040628, end: 20040628
  7. MELPHALAN (MELPHALAN) [Suspect]
     Indication: MULTIPLE MYELOMA
     Dosage: 350 MG, DAILY; 350 MG, DAILY
     Dates: start: 20040924, end: 20040922
  8. DEXAMETHASONE [Suspect]
     Indication: MULTIPLE MYELOMA
     Dosage: SEE IMAGE
     Route: 042
     Dates: start: 20040920, end: 20040923
  9. DEXAMETHASONE [Suspect]
     Indication: MULTIPLE MYELOMA
     Dosage: SEE IMAGE
     Route: 042
     Dates: start: 20010127
  10. DEXAMETHASONE [Suspect]
     Indication: MULTIPLE MYELOMA
     Dosage: SEE IMAGE
     Route: 042
     Dates: start: 20040303
  11. DEXAMETHASONE [Suspect]
     Indication: MULTIPLE MYELOMA
     Dosage: SEE IMAGE
     Route: 042
     Dates: start: 20040405
  12. DEXAMETHASONE [Suspect]
     Indication: MULTIPLE MYELOMA
     Dosage: SEE IMAGE
     Route: 042
     Dates: start: 20040521
  13. PREDNISONE [Suspect]
     Indication: RESPIRATORY SYNCYTIAL VIRUS INFECTION
     Dosage: 20 MG, DAILY, INTRAVENOUS
     Route: 042
     Dates: start: 20041005
  14. VINCRISTINE [Suspect]
     Indication: MULTIPLE MYELOMA
     Dates: start: 20040127
  15. ADRIAMYCIN PFS [Suspect]
     Indication: MULTIPLE MYELOMA
     Dates: start: 20040127
  16. ADRIAMYCIN PFS [Suspect]
     Indication: MULTIPLE MYELOMA
     Dates: start: 20040405
  17. CYCLOPHOSPHAMIDE [Suspect]
     Indication: MULTIPLE MYELOMA
     Dates: start: 20040303
  18. CYCLOPHOSPHAMIDE [Suspect]
     Indication: MULTIPLE MYELOMA
     Dates: start: 20040405
  19. CYCLOPHOSPHAMIDE [Suspect]
     Indication: MULTIPLE MYELOMA
     Dates: start: 20040521
  20. ETOPOSIDE [Suspect]
     Indication: MULTIPLE MYELOMA
     Dates: start: 20040303
  21. ETOPOSIDE [Suspect]
     Indication: MULTIPLE MYELOMA
     Dates: start: 20040521
  22. CISPLATIN [Suspect]
     Indication: MULTIPLE MYELOMA
     Dates: start: 20040303
  23. CISPLATIN [Suspect]
     Indication: MULTIPLE MYELOMA
     Dates: start: 20040521
  24. ACYCLOVIR [Concomitant]
  25. PROTONIX [Concomitant]
  26. DOXYCYCLINE [Concomitant]
  27. ATIVAN [Concomitant]
  28. ZOLOFT [Concomitant]
  29. FENTANYL [Concomitant]
  30. NIFEREX (POLYSACCHARIDE-IRON COMPLEX) [Concomitant]
  31. FOLATE (FOLIC ACID) [Concomitant]
  32. TEQUIN [Concomitant]
  33. AREDIA [Concomitant]
  34. CALCIUM GLUCONATE [Concomitant]
  35. ALBUTEROL (SALBUTAMOL) (INHALANT) [Concomitant]
  36. FLOVENT (FLUTICASONE PROPIONATE) (INHALANT) [Concomitant]
  37. OXYCODONE [Concomitant]

REACTIONS (14)
  - ASPERGILLOSIS [None]
  - CATHETER SITE ERYTHEMA [None]
  - CHEST PAIN [None]
  - CLOSTRIDIUM COLITIS [None]
  - DEEP VEIN THROMBOSIS [None]
  - DIARRHOEA [None]
  - DYSPNOEA [None]
  - NASAL CONGESTION [None]
  - NAUSEA [None]
  - PARAINFLUENZAE VIRUS INFECTION [None]
  - PNEUMONIA ASPERGILLUS [None]
  - PYREXIA [None]
  - TENDERNESS [None]
  - VOMITING [None]
